FAERS Safety Report 8707475 (Version 3)
Quarter: 2013Q4

REPORT INFORMATION
  Report Type: Spontaneous
  Country: US (occurrence: US)
  Receive Date: 20120804
  Receipt Date: 20131031
  Transmission Date: 20140711
  Serious: Yes (Other)
  Sender: FDA-Public Use
  Company Number: US-009507513-1207USA008982

PATIENT
  Sex: 0

DRUGS (1)
  1. SINEMET [Suspect]
     Route: 048

REACTIONS (1)
  - Dialysis [Unknown]
